FAERS Safety Report 5478392-4 (Version None)
Quarter: 2007Q4

REPORT INFORMATION
  Report Type: 
  Country: None (occurrence: None)
  Receive Date: 20071005
  Receipt Date: 20071004
  Transmission Date: 20080405
  Serious: Yes (Other)
  Sender: FDA-Public Use
  Company Number: B0489706A

PATIENT
  Age: 68 Year
  Sex: Female

DRUGS (3)
  1. PAXIL [Suspect]
     Indication: DEPRESSION
     Dosage: 10MG PER DAY
     Route: 048
     Dates: start: 20070824, end: 20070827
  2. DOGMATYL [Concomitant]
     Indication: DEPRESSION
     Dosage: 150MG PER DAY
     Route: 065
     Dates: start: 20070727, end: 20070827
  3. DIAZEPAM [Concomitant]
     Indication: DEPRESSION
     Dosage: 4MG PER DAY
     Route: 065
     Dates: start: 20070727

REACTIONS (1)
  - PARKINSONISM [None]
